FAERS Safety Report 8007657-7 (Version None)
Quarter: 2011Q4

REPORT INFORMATION
  Report Type: 
  Country: None (occurrence: None)
  Receive Date: 20111227
  Receipt Date: 20111212
  Transmission Date: 20120403
  Serious: Yes (Hospitalization, Other)
  Sender: FDA-Public Use
  Company Number: US-PFIZER INC-2011161072

PATIENT
  Sex: Female
  Weight: 103 kg

DRUGS (8)
  1. LYRICA [Suspect]
     Dosage: UNK
     Dates: start: 20100101
  2. LYRICA [Suspect]
     Dosage: UNK
  3. LYRICA [Suspect]
     Dosage: 200 MG, UNK
  4. PAXIL [Concomitant]
     Indication: DEPRESSION
     Dosage: 10 MG, DAILY
  5. LYRICA [Suspect]
     Indication: FIBROMYALGIA
     Dosage: 150 MG, UNK
     Dates: start: 20100101
  6. PROTONIX [Suspect]
     Dosage: UNKNOWN
  7. VICODIN [Suspect]
     Dosage: UNK
  8. PROCARDIA [Suspect]

REACTIONS (10)
  - DYSPNOEA [None]
  - VISION BLURRED [None]
  - IMPAIRED DRIVING ABILITY [None]
  - NAUSEA [None]
  - VISUAL ACUITY REDUCED [None]
  - SWELLING [None]
  - ABDOMINAL PAIN [None]
  - CONFUSIONAL STATE [None]
  - SINUSITIS [None]
  - ABDOMINAL PAIN UPPER [None]
